FAERS Safety Report 6921212-9 (Version None)
Quarter: 2010Q3

REPORT INFORMATION
  Report Type: 
  Country: None (occurrence: None)
  Receive Date: 20100812
  Receipt Date: 20100804
  Transmission Date: 20110219
  Serious: Yes (Hospitalization)
  Sender: FDA-Public Use
  Company Number: A0866142A

PATIENT
  Age: 70 Year
  Sex: Male
  Weight: 127.3 kg

DRUGS (8)
  1. AVANDIA [Suspect]
     Dosage: 8MG PER DAY
     Route: 048
     Dates: start: 19991028, end: 20050101
  2. VERAPAMIL [Concomitant]
  3. FLOMAX [Concomitant]
  4. LIPITOR [Concomitant]
  5. PROSCAR [Concomitant]
  6. ZANTAC [Concomitant]
  7. GLUCOTROL XL [Concomitant]
  8. CELEBREX [Concomitant]

REACTIONS (2)
  - CARDIAC FAILURE CONGESTIVE [None]
  - CEREBROVASCULAR ACCIDENT [None]
